FAERS Safety Report 5367470-6 (Version None)
Quarter: 2007Q2

REPORT INFORMATION
  Report Type: 
  Country: None (occurrence: None)
  Receive Date: 20070622
  Receipt Date: 20060926
  Transmission Date: 20071010
  Serious: No
  Sender: FDA-Public Use
  Company Number: US-ASTRAZENECA-2006UW18772

PATIENT
  Sex: Female

DRUGS (4)
  1. PULMICORT RESPULES [Suspect]
     Route: 055
     Dates: start: 20060922
  2. XOPENEX [Concomitant]
  3. SINGULAIR [Concomitant]
  4. BENADRYL [Concomitant]

REACTIONS (2)
  - DYSKINESIA [None]
  - EXCESSIVE EYE BLINKING [None]
